FAERS Safety Report 9643032 (Version 1)
Quarter: 2013Q4

REPORT INFORMATION
  Report Type: Spontaneous
  Country: FI (occurrence: FI)
  Receive Date: 20131024
  Receipt Date: 20131024
  Transmission Date: 20140711
  Serious: Yes (Hospitalization)
  Sender: FDA-Public Use
  Company Number: FI-JNJFOC-20131010571

PATIENT
  Sex: Female

DRUGS (1)
  1. SPORANOX [Suspect]
     Indication: ONYCHOMYCOSIS
     Route: 065
     Dates: start: 20130712

REACTIONS (5)
  - Hepatic enzyme increased [Recovering/Resolving]
  - Eosinophilic pneumonia [Unknown]
  - Pyrexia [Unknown]
  - Cough [Unknown]
  - Abdominal pain upper [Recovered/Resolved]
